FAERS Safety Report 5750232-5 (Version None)
Quarter: 2008Q2

REPORT INFORMATION
  Report Type: 
  Country: None (occurrence: None)
  Receive Date: 20080527
  Receipt Date: 20080518
  Transmission Date: 20081010
  Serious: Yes (Other)
  Sender: FDA-Public Use
  Company Number: US-PFIZER INC-2008042747

PATIENT
  Sex: Female
  Weight: 67.272 kg

DRUGS (5)
  1. CHANTIX [Suspect]
     Indication: EX-SMOKER
     Route: 048
     Dates: start: 20080201, end: 20080401
  2. CHANTIX [Suspect]
     Dates: start: 20080512, end: 20080514
  3. ORAL CONTRACEPTIVE NOS [Concomitant]
     Route: 048
  4. VITAMIN CAP [Concomitant]
     Route: 048
  5. CALCIUM [Concomitant]
     Route: 048

REACTIONS (3)
  - ANXIETY [None]
  - HYPERSOMNIA [None]
  - PARANOIA [None]
